FAERS Safety Report 18226837 (Version 1)
Quarter: 2020Q3

REPORT INFORMATION
  Report Type: Report from Study
  Country: None (occurrence: US)
  Receive Date: 20200903
  Receipt Date: 20200903
  Transmission Date: 20201103
  Serious: Yes (Other)
  Sender: FDA-Public Use
  Company Number: US-ABBVIE-20K-163-3425806-00

PATIENT
  Sex: Female
  Weight: 68.1 kg

DRUGS (1)
  1. HUMIRA [Suspect]
     Active Substance: ADALIMUMAB
     Indication: CROHN^S DISEASE
     Route: 058

REACTIONS (5)
  - Blood count abnormal [Recovered/Resolved]
  - Pain [Not Recovered/Not Resolved]
  - Exposure to SARS-CoV-2 [Unknown]
  - Musculoskeletal stiffness [Not Recovered/Not Resolved]
  - Gastroenteritis norovirus [Recovered/Resolved]
